FAERS Safety Report 4451160-8 (Version None)
Quarter: 2004Q3

REPORT INFORMATION
  Report Type: 
  Country: None (occurrence: None)
  Receive Date: 20040915
  Receipt Date: 20040915
  Transmission Date: 20050211
  Serious: Yes (Hospitalization)
  Sender: FDA-Public Use
  Company Number: None

PATIENT
  Age: 49 Year
  Sex: Female
  Weight: 69 kg

DRUGS (1)
  1. PACLITAXEL [Suspect]
     Indication: BREAST CANCER METASTATIC
     Dosage: 90 MG/M2 (161 MG )
     Dates: start: 20030908

REACTIONS (6)
  - AXILLARY PAIN [None]
  - BACK PAIN [None]
  - CANCER PAIN [None]
  - DRUG TOXICITY [None]
  - NAUSEA [None]
  - VOMITING [None]
